FAERS Safety Report 21892091 (Version 1)
Quarter: 2023Q1

REPORT INFORMATION
  Report Type: Spontaneous
  Country: US (occurrence: None)
  Receive Date: 20230120
  Receipt Date: 20230120
  Transmission Date: 20230418
  Serious: Yes (unspecified)
  Sender: FDA-Public Use
  Company Number: None

PATIENT
  Age: 81 Year
  Sex: Female
  Weight: 58.5 kg

DRUGS (10)
  1. LISINOPRIL [Suspect]
     Active Substance: LISINOPRIL
     Indication: Essential hypertension
     Dosage: OTHER QUANTITY : 1 TABLET(S);?FREQUENCY : AT BEDTIME;?
     Route: 048
     Dates: start: 20210305, end: 20230119
  2. Levothyroxinr 25 mcg [Concomitant]
  3. Metroprolol Succ ER 25 mg [Concomitant]
  4. PRAVASTATIN [Concomitant]
     Active Substance: PRAVASTATIN
  5. Vit. D 2,000 mg [Concomitant]
  6. Lucentis injections [Concomitant]
  7. bilateral eyes q8wks [Concomitant]
  8. AREDS II eye vits. [Concomitant]
  9. CoQ10 200 mg [Concomitant]
  10. Vit. K2 100 mg [Concomitant]

REACTIONS (7)
  - Angioedema [None]
  - Oedema mouth [None]
  - Choking [None]
  - Dysphagia [None]
  - Cough [None]
  - Headache [None]
  - Sensation of foreign body [None]

NARRATIVE: CASE EVENT DATE: 20230106
